FAERS Safety Report 7633682-1 (Version None)
Quarter: 2011Q3

REPORT INFORMATION
  Report Type: 
  Country: None (occurrence: None)
  Receive Date: 20110725
  Receipt Date: 20110720
  Transmission Date: 20111222
  Serious: No
  Sender: FDA-Public Use
  Company Number: US-TEVA-291658USA

PATIENT
  Age: 19 Year
  Sex: Female
  Weight: 54.48 kg

DRUGS (2)
  1. PLAN B ONE-STEP [Suspect]
     Indication: POST COITAL CONTRACEPTION
     Dosage: 1.5 MILLIGRAM;
     Route: 048
     Dates: start: 20110719, end: 20110719
  2. CHORIONIC GONADOTROPIN [Concomitant]
     Indication: WEIGHT LOSS DIET
     Route: 048

REACTIONS (4)
  - PELVIC PAIN [None]
  - VOMITING [None]
  - MENSTRUATION IRREGULAR [None]
  - NAUSEA [None]
